FAERS Safety Report 6156364-4 (Version None)
Quarter: 2009Q2

REPORT INFORMATION
  Report Type: 
  Country: None (occurrence: None)
  Receive Date: 20090415
  Receipt Date: 20090409
  Transmission Date: 20091009
  Serious: Yes (Other)
  Sender: FDA-Public Use
  Company Number: AU-VALEANT-2009VX000607

PATIENT
  Age: 57 Year
  Sex: Female

DRUGS (1)
  1. EFUDIX [Suspect]
     Indication: SKIN CANCER
     Route: 061

REACTIONS (1)
  - LEUKAEMIA [None]
